FAERS Safety Report 5391085-7 (Version None)
Quarter: 2007Q3

REPORT INFORMATION
  Report Type: 
  Country: None (occurrence: None)
  Receive Date: 20070719
  Receipt Date: 20070711
  Transmission Date: 20080115
  Serious: Yes (Other)
  Sender: FDA-Public Use
  Company Number: TR-JNJFOC-20070702308

PATIENT
  Age: 75 Year
  Sex: Male

DRUGS (1)
  1. OFLOXACIN [Suspect]
     Indication: DRUG USE FOR UNKNOWN INDICATION
     Route: 065

REACTIONS (6)
  - COGWHEEL RIGIDITY [None]
  - CONFUSIONAL STATE [None]
  - DYSPHAGIA [None]
  - IRRITABILITY [None]
  - LOSS OF CONSCIOUSNESS [None]
  - SALIVARY HYPERSECRETION [None]
